FAERS Safety Report 13260214 (Version 2)
Quarter: 2017Q3

REPORT INFORMATION
  Report Type: Spontaneous
  Country: US (occurrence: US)
  Receive Date: 20170222
  Receipt Date: 20170807
  Transmission Date: 20171127
  Serious: Yes (Other)
  Sender: FDA-Public Use
  Company Number: US-VIFOR (INTERNATIONAL) INC.-VIT-2016-07207

PATIENT
  Age: 74 Year
  Sex: Male

DRUGS (14)
  1. VELTASSA [Suspect]
     Active Substance: PATIROMER
     Indication: HYPERKALAEMIA
     Route: 048
     Dates: start: 20160405
  2. CARVEDILOL. [Concomitant]
     Active Substance: CARVEDILOL
  3. HYDRALAZINE HYDROCHLORIDE. [Concomitant]
     Active Substance: HYDRALAZINE HYDROCHLORIDE
  4. LEVEMIR [Concomitant]
     Active Substance: INSULIN DETEMIR
  5. ALLOPURINOL. [Concomitant]
     Active Substance: ALLOPURINOL
  6. MONTELUKAST SODIUM. [Concomitant]
     Active Substance: MONTELUKAST SODIUM
  7. NOVOLOG [Concomitant]
     Active Substance: INSULIN ASPART
  8. SODIUM BICARBONATE. [Concomitant]
     Active Substance: SODIUM BICARBONATE
  9. SIMVASTATIN. [Concomitant]
     Active Substance: SIMVASTATIN
  10. BENAZEPRIL HYDROCHLORIDE/AMLODIPINE BESILATE [Concomitant]
  11. VELTASSA [Suspect]
     Active Substance: PATIROMER
     Route: 048
     Dates: end: 201704
  12. FINASTERIDE. [Concomitant]
     Active Substance: FINASTERIDE
  13. PARICALCITOL. [Concomitant]
     Active Substance: PARICALCITOL
  14. LISINOPRIL. [Concomitant]
     Active Substance: LISINOPRIL

REACTIONS (6)
  - Drug dose omission [Unknown]
  - Blood pressure increased [Unknown]
  - Inappropriate schedule of drug administration [Unknown]
  - Colon cancer [Unknown]
  - Gastrointestinal disorder [Unknown]
  - Diabetes mellitus [Unknown]

NARRATIVE: CASE EVENT DATE: 2016
